FAERS Safety Report 12966697 (Version 1)
Quarter: 2016Q4

REPORT INFORMATION
  Report Type: Spontaneous
  Country: US (occurrence: US)
  Receive Date: 20161119
  Receipt Date: 20161119
  Transmission Date: 20170207
  Serious: No
  Sender: FDA-Public Use
  Company Number: None

PATIENT
  Age: 14 Year
  Sex: Female

DRUGS (1)
  1. HUMIRA [Suspect]
     Active Substance: ADALIMUMAB
     Indication: CROHN^S DISEASE
     Dosage: 40MG 4 PENS ON DAY 1, THEN 2 PENS SUBCUTANEOUS
     Route: 058
     Dates: start: 201510

REACTIONS (2)
  - Migraine [None]
  - Condition aggravated [None]

NARRATIVE: CASE EVENT DATE: 20161031
